FAERS Safety Report 4401350-5 (Version None)
Quarter: 2004Q3

REPORT INFORMATION
  Report Type: 
  Country: None (occurrence: None)
  Receive Date: 20040907
  Receipt Date: 20040322
  Transmission Date: 20050211
  Serious: Yes (Other)
  Sender: FDA-Public Use
  Company Number: US-BRISTOL-MYERS SQUIBB COMPANY-12539292

PATIENT
  Age: 3 Month
  Sex: Male

DRUGS (8)
  1. COUMADIN [Suspect]
     Dosage: COUMADIN HELD ON 22-MAR-2004 PENDING BLOOD WORK RESULTS
     Route: 048
     Dates: start: 20040313
  2. SODIUM CHLORIDE INJ [Concomitant]
  3. METHADONE HCL [Concomitant]
  4. DIGOXIN [Concomitant]
  5. FERROUS SULFATE TAB [Concomitant]
  6. AMIODARONE HCL [Concomitant]
  7. CHLOROTHIAZIDE [Concomitant]
  8. FUROSEMIDE [Concomitant]
     Dosage: ^COMPOUND^

REACTIONS (1)
  - INTERNATIONAL NORMALISED RATIO INCREASED [None]
